FAERS Safety Report 7810579-5 (Version None)
Quarter: 2011Q4

REPORT INFORMATION
  Report Type: 
  Country: None (occurrence: None)
  Receive Date: 20111013
  Receipt Date: 20111004
  Transmission Date: 20120403
  Serious: No
  Sender: FDA-Public Use
  Company Number: US-BIOGENIDEC-2010BI008734

PATIENT
  Age: 48 Year
  Sex: Female

DRUGS (1)
  1. TYSABRI [Suspect]
     Indication: MULTIPLE SCLEROSIS
     Route: 042
     Dates: start: 20091124

REACTIONS (9)
  - FALL [None]
  - POOR VENOUS ACCESS [None]
  - HEADACHE [None]
  - UPPER LIMB FRACTURE [None]
  - OCULAR NEOPLASM [None]
  - VISUAL IMPAIRMENT [None]
  - STRESS [None]
  - VISUAL FIELD TESTS [None]
  - HYPOAESTHESIA [None]
